FAERS Safety Report 5093848-4 (Version None)
Quarter: 2006Q3

REPORT INFORMATION
  Report Type: 
  Country: None (occurrence: None)
  Receive Date: 20060829
  Receipt Date: 20060829
  Transmission Date: 20061208
  Serious: Yes (Other)
  Sender: FDA-Public Use
  Company Number: None

PATIENT
  Age: 58 Year
  Sex: Male
  Weight: 84.8 kg

DRUGS (1)
  1. POTASSIUM IODIDE [Suspect]

REACTIONS (1)
  - SWELLING [None]
